FAERS Safety Report 13249822 (Version 1)
Quarter: 2017Q1

REPORT INFORMATION
  Report Type: Spontaneous
  Country: US (occurrence: US)
  Receive Date: 20170218
  Receipt Date: 20170218
  Transmission Date: 20170428
  Serious: No
  Sender: FDA-Public Use
  Company Number: US-ALLERGAN-1675369US

PATIENT
  Age: 74 Year
  Sex: Male

DRUGS (2)
  1. CLEAR EYES [Concomitant]
     Active Substance: NAPHAZOLINE HYDROCHLORIDE
     Indication: DRY EYE
     Route: 047
  2. RESTASIS [Suspect]
     Active Substance: CYCLOSPORINE
     Indication: DRY EYE
     Dosage: 1 GTT, UNK
     Route: 047
     Dates: start: 20161104, end: 20161104

REACTIONS (5)
  - Ocular hyperaemia [Recovered/Resolved]
  - Visual impairment [Recovering/Resolving]
  - Inappropriate schedule of drug administration [Unknown]
  - Eye inflammation [Recovered/Resolved]
  - Eye irritation [Recovered/Resolved]

NARRATIVE: CASE EVENT DATE: 20161104
